FAERS Safety Report 7198795-X (Version None)
Quarter: 2010Q4

REPORT INFORMATION
  Report Type: 
  Country: None (occurrence: None)
  Receive Date: 20101227
  Receipt Date: 20101214
  Transmission Date: 20110411
  Serious: Yes (Hospitalization)
  Sender: FDA-Public Use
  Company Number: JP-SANOFI-AVENTIS-2010SA075311

PATIENT
  Age: 78 Year
  Sex: Male

DRUGS (4)
  1. TAKEPRON [Suspect]
     Route: 048
     Dates: end: 20101208
  2. PLAVIX [Suspect]
     Route: 048
     Dates: start: 20101028
  3. ASPIRIN [Concomitant]
     Route: 048
     Dates: end: 20101027
  4. PLETAL [Concomitant]
     Route: 048
     Dates: end: 20101027

REACTIONS (1)
  - DIARRHOEA [None]
